FAERS Safety Report 7984038-3 (Version None)
Quarter: 2011Q4

REPORT INFORMATION
  Report Type: 
  Country: None (occurrence: None)
  Receive Date: 20111216
  Receipt Date: 20111205
  Transmission Date: 20120403
  Serious: Yes (Hospitalization)
  Sender: FDA-Public Use
  Company Number: HU-PFIZER INC-2011095795

PATIENT
  Age: 64 Year
  Sex: Female

DRUGS (7)
  1. BISOPROLOL FUMARATE [Concomitant]
     Indication: HYPERTENSION
     Dosage: UNK
  2. MESTINON [Concomitant]
     Indication: MYASTHENIC SYNDROME
     Dosage: UNK
  3. NORMODIPIN [Concomitant]
     Indication: HYPERTENSION
     Dosage: UNK
  4. PANTOPRAZOLE [Concomitant]
     Dosage: UNK
  5. ASPIRIN [Concomitant]
     Indication: PROPHYLAXIS
     Dosage: UNK
  6. RAMIPRIL [Suspect]
     Indication: HYPERTENSION
     Dosage: 1.25 MG, 1X/DAY
     Route: 048
     Dates: start: 20110225, end: 20110419
  7. DIAPREL [Concomitant]
     Indication: TYPE 2 DIABETES MELLITUS
     Dosage: UNK

REACTIONS (5)
  - SWOLLEN TONGUE [None]
  - ANGIOEDEMA [None]
  - DYSPHAGIA [None]
  - DYSARTHRIA [None]
  - RESPIRATORY DISTRESS [None]
